FAERS Safety Report 11018650 (Version 2)
Quarter: 2015Q2

REPORT INFORMATION
  Report Type: Spontaneous
  Country: US (occurrence: US)
  Receive Date: 20150412
  Receipt Date: 20150524
  Transmission Date: 20150821
  Serious: No
  Sender: FDA-Public Use
  Company Number: US-JNJFOC-20130915856

PATIENT
  Age: 58 Year
  Sex: Female
  Weight: 113.85 kg

DRUGS (3)
  1. DOXIL [Suspect]
     Active Substance: DOXORUBICIN HYDROCHLORIDE
     Indication: OVARIAN CANCER METASTATIC
     Dosage: UNSPECIFIED/SOLUTION/ UNSPECIFIED/EVERY 4 WEEKS/ INTRAVENOUS
     Route: 042
     Dates: start: 20130924
  2. XANAX [Concomitant]
     Active Substance: ALPRAZOLAM
     Indication: ANXIETY
     Dosage: 1 MG/TABLET/AS NEEDED/ORAL
     Route: 048
     Dates: start: 2010
  3. RANITIDINE [Concomitant]
     Active Substance: RANITIDINE\RANITIDINE HYDROCHLORIDE
     Indication: GASTRIC DISORDER
     Dosage: 150MG/TABLET/AS NEEDED/ORAL
     Route: 048
     Dates: start: 2012

REACTIONS (3)
  - Dizziness [Not Recovered/Not Resolved]
  - Therapeutic response unexpected [Not Recovered/Not Resolved]
  - Headache [Recovering/Resolving]

NARRATIVE: CASE EVENT DATE: 201309
